FAERS Safety Report 7486058-4 (Version None)
Quarter: 2011Q2

REPORT INFORMATION
  Report Type: 
  Country: None (occurrence: None)
  Receive Date: 20110517
  Receipt Date: 20110506
  Transmission Date: 20111010
  Serious: Yes (Other)
  Sender: FDA-Public Use
  Company Number: GB-BAXTER-2011BH015428

PATIENT
  Age: 66 Year
  Sex: Female
  Weight: 73 kg

DRUGS (18)
  1. STERILE WATER FOR INJECTION IN PLASTIC CONTAINER [Suspect]
     Indication: MEDICATION DILUTION
     Route: 042
     Dates: start: 20110215, end: 20110215
  2. TRASTUZUMAB [Suspect]
     Indication: BREAST CANCER
     Route: 042
     Dates: start: 20110215, end: 20110215
  3. SODIUM CHLORIDE 0.9% IN PLASTIC CONTAINER [Suspect]
     Route: 042
     Dates: start: 20110216, end: 20110216
  4. TRASTUZUMAB [Suspect]
     Route: 042
     Dates: start: 20110309, end: 20110309
  5. DOCETAXEL [Suspect]
     Route: 042
     Dates: start: 20110216, end: 20110216
  6. DOCETAXEL [Suspect]
     Route: 042
     Dates: start: 20110309, end: 20110309
  7. DEXAMETHASONE [Concomitant]
     Indication: MYALGIA
     Route: 065
  8. PEGFILGRASTIM [Concomitant]
     Indication: PRODUCT USED FOR UNKNOWN INDICATION
     Route: 065
  9. SODIUM CHLORIDE 0.9% IN PLASTIC CONTAINER [Suspect]
     Route: 042
     Dates: start: 20110309, end: 20110309
  10. DOCETAXEL [Suspect]
     Indication: BREAST CANCER
     Route: 042
     Dates: start: 20110216, end: 20110216
  11. CYCLOPHOSPHAMIDE [Concomitant]
     Indication: BREAST CANCER
     Route: 065
  12. FILGRASTIM [Concomitant]
     Indication: PRODUCT USED FOR UNKNOWN INDICATION
     Route: 065
  13. FLUOROURACIL [Concomitant]
     Indication: BREAST CANCER
     Route: 065
  14. EPIRUBICIN [Concomitant]
     Indication: BREAST CANCER
     Route: 065
  15. SODIUM CHLORIDE 0.9% IN PLASTIC CONTAINER [Suspect]
     Indication: MEDICATION DILUTION
     Route: 042
     Dates: start: 20110215, end: 20110215
  16. DOCETAXEL [Suspect]
     Route: 042
     Dates: start: 20110216, end: 20110216
  17. DOCETAXEL [Suspect]
     Route: 042
     Dates: start: 20110309, end: 20110309
  18. STERILE WATER FOR INJECTION IN PLASTIC CONTAINER [Suspect]
     Route: 042
     Dates: start: 20110309, end: 20110309

REACTIONS (8)
  - CANDIDIASIS [None]
  - SWELLING FACE [None]
  - NEUTROPENIC SEPSIS [None]
  - LACRIMATION INCREASED [None]
  - RASH [None]
  - MYALGIA [None]
  - OEDEMA PERIPHERAL [None]
  - SKIN EXFOLIATION [None]
